FAERS Safety Report 9393674 (Version 1)
Quarter: 2013Q3

REPORT INFORMATION
  Report Type: Spontaneous
  Country: US (occurrence: US)
  Receive Date: 20130710
  Receipt Date: 20130710
  Transmission Date: 20140515
  Serious: Yes (Other)
  Sender: FDA-Public Use
  Company Number: US-ELI_LILLY_AND_COMPANY-US201307001258

PATIENT
  Age: 61 Year
  Sex: Female

DRUGS (2)
  1. HUMULIN R [Suspect]
     Dosage: UNK
     Route: 058
  2. ADVIL /00109201/ [Suspect]

REACTIONS (4)
  - Renal disorder [Unknown]
  - Tremor [Unknown]
  - Blood glucose abnormal [Recovered/Resolved]
  - Blood glucose decreased [Recovered/Resolved]
